FAERS Safety Report 21029790 (Version 2)
Quarter: 2022Q3

REPORT INFORMATION
  Report Type: Spontaneous
  Country: US (occurrence: None)
  Receive Date: 20220630
  Receipt Date: 20220725
  Transmission Date: 20221027
  Serious: No
  Sender: FDA-Public Use
  Company Number: 2022A234938

PATIENT
  Age: 45 Year
  Sex: Female
  Weight: 54.4 kg

DRUGS (2)
  1. BUDESONIDE\FORMOTEROL FUMARATE DIHYDRATE [Suspect]
     Active Substance: BUDESONIDE\FORMOTEROL FUMARATE DIHYDRATE
     Indication: Asthma
     Dosage: 160-4.5 MCG 2 PUFFS TWICE A DAY
     Route: 055
     Dates: start: 202202
  2. BUDESONIDE\FORMOTEROL FUMARATE DIHYDRATE [Suspect]
     Active Substance: BUDESONIDE\FORMOTEROL FUMARATE DIHYDRATE
     Indication: Asthma
     Dosage: 120 UG; TWO TIMES A DAY
     Route: 055
     Dates: start: 20220529

REACTIONS (6)
  - Feeling abnormal [Not Recovered/Not Resolved]
  - Cough [Not Recovered/Not Resolved]
  - Quality of life decreased [Unknown]
  - Incorrect dose administered [Unknown]
  - Device delivery system issue [Unknown]
  - Poor quality device used [Unknown]
